FAERS Safety Report 6737727-2 (Version None)
Quarter: 2010Q2

REPORT INFORMATION
  Report Type: 
  Country: None (occurrence: None)
  Receive Date: 20100524
  Receipt Date: 20100512
  Transmission Date: 20101027
  Serious: Yes (Hospitalization)
  Sender: FDA-Public Use
  Company Number: PHHY2010KR32127

PATIENT
  Sex: Female
  Weight: 59 kg

DRUGS (4)
  1. ZOLEDRONATE T29581+SOLINF [Suspect]
     Indication: METASTASES TO BONE
     Dosage: 4 MG
     Dates: start: 20100331
  2. NAXEN [Concomitant]
     Indication: PYREXIA
     Dosage: UNK
     Dates: start: 20100414
  3. MUCOSTA [Concomitant]
     Indication: REFLUX OESOPHAGITIS
     Dosage: UNK
     Dates: start: 20100415
  4. OXYCONTIN [Concomitant]
     Indication: PAIN
     Dosage: 20-30 MG
     Dates: start: 20100310

REACTIONS (2)
  - PELVIC PAIN [None]
  - PYREXIA [None]
